FAERS Safety Report 5090400-1 (Version None)
Quarter: 2006Q3

REPORT INFORMATION
  Report Type: 
  Country: None (occurrence: None)
  Receive Date: 20060823
  Receipt Date: 20060816
  Transmission Date: 20061208
  Serious: Yes (Death, Hospitalization)
  Sender: FDA-Public Use
  Company Number: 2006-08-1215

PATIENT
  Age: 46 Year
  Sex: Male

DRUGS (6)
  1. PEG-INTRON [Suspect]
     Indication: HEPATITIS C
     Dosage: 90 MCG QWK SUBCUTANEOUS
     Route: 058
     Dates: start: 20060520
  2. RIBAVIRIN [Suspect]
     Indication: HEPATITIS C
     Dosage: 1200 MG QD ORAL
     Route: 048
     Dates: start: 20060520
  3. AMILORIDE HYDROCHLORIDE TABLETS [Concomitant]
  4. FUROSEMIDE [Concomitant]
  5. POTASSIUM CHLORIDE SUSTAINED RELEASE CAPSULES [Concomitant]
  6. PROPRANOLOL HYDROCHLORIDE TABLETS [Concomitant]

REACTIONS (5)
  - CARDIAC FAILURE [None]
  - DISORIENTATION [None]
  - ENCEPHALOPATHY [None]
  - HEPATIC FAILURE [None]
  - RENAL FAILURE [None]
